FAERS Safety Report 5424681-9 (Version None)
Quarter: 2007Q3

REPORT INFORMATION
  Report Type: 
  Country: None (occurrence: None)
  Receive Date: 20070824
  Receipt Date: 20070817
  Transmission Date: 20080115
  Serious: Yes (Other)
  Sender: FDA-Public Use
  Company Number: PHBS2007CH13685

PATIENT
  Sex: Female

DRUGS (1)
  1. ZOMETA [Suspect]
     Indication: METASTASES TO BONE
     Dosage: 4 MG/MONTH
     Route: 042
     Dates: start: 20020101, end: 20050101

REACTIONS (4)
  - ORAL SURGERY [None]
  - OSTEONECROSIS [None]
  - SINUS PERFORATION [None]
  - TOOTH EXTRACTION [None]
